FAERS Safety Report 24423776 (Version 3)
Quarter: 2024Q4

REPORT INFORMATION
  Report Type: Report from Study
  Country: DE (occurrence: DE)
  Receive Date: 20241010
  Receipt Date: 20241031
  Transmission Date: 20250114
  Serious: Yes (Hospitalization)
  Sender: TAKEDA
  Company Number: DE-TAKEDA-2024TUS099324

PATIENT
  Sex: Male

DRUGS (33)
  1. ANTIHEMOPHILIC FACTOR, PEGYLATED (MW 20000) HUMAN SEQUENCE RECOMBINANT [Suspect]
     Active Substance: ANTIHEMOPHILIC FACTOR, PEGYLATED (MW 20000) HUMAN SEQUENCE RECOMBINANT
     Indication: Factor VIII deficiency
     Dosage: 24 INTERNATIONAL UNIT/KILOGRAM, QOD
     Route: 065
     Dates: start: 20210701
  2. ANTIHEMOPHILIC FACTOR, PEGYLATED (MW 20000) HUMAN SEQUENCE RECOMBINANT [Suspect]
     Active Substance: ANTIHEMOPHILIC FACTOR, PEGYLATED (MW 20000) HUMAN SEQUENCE RECOMBINANT
     Indication: Factor VIII deficiency
     Dosage: 24 INTERNATIONAL UNIT/KILOGRAM, QOD
     Route: 065
     Dates: start: 20210701
  3. ANTIHEMOPHILIC FACTOR, PEGYLATED (MW 20000) HUMAN SEQUENCE RECOMBINANT [Suspect]
     Active Substance: ANTIHEMOPHILIC FACTOR, PEGYLATED (MW 20000) HUMAN SEQUENCE RECOMBINANT
     Indication: Factor VIII deficiency
     Dosage: 24 INTERNATIONAL UNIT/KILOGRAM, QOD
     Route: 065
     Dates: start: 20210701
  4. TADALAFIL [Concomitant]
     Active Substance: TADALAFIL
     Indication: Benign prostatic hyperplasia
     Dosage: 5 MILLIGRAM, QD
     Route: 048
     Dates: start: 20210409
  5. METOPROLOL [Concomitant]
     Active Substance: METOPROLOL
     Indication: Hypertension
     Dosage: 50 MILLIGRAM, QD
     Route: 048
  6. AMLODIPINE BESYLATE [Concomitant]
     Active Substance: AMLODIPINE BESYLATE
     Indication: Hypertension
     Dosage: 5 MILLIGRAM, QD
     Route: 048
  7. CANDESARTAN [Concomitant]
     Active Substance: CANDESARTAN
     Indication: Hypertension
     Dosage: 32 MILLIGRAM, QD
     Route: 048
  8. VITAMIN D [Concomitant]
     Active Substance: VITAMIN D NOS
     Indication: Osteoporosis
     Dosage: UNK UNK, QD
     Route: 048
  9. ETORICOXIB [Concomitant]
     Active Substance: ETORICOXIB
     Indication: Haemophilic arthropathy
     Dosage: 90 MILLIGRAM, QD
     Route: 048
     Dates: start: 20220518, end: 20220601
  10. PANTOPRAZOLE SODIUM [Concomitant]
     Active Substance: PANTOPRAZOLE SODIUM
     Indication: Prophylaxis
     Dosage: 40 MILLIGRAM, QD
     Route: 048
     Dates: start: 20220518, end: 20220601
  11. PANTOPRAZOLE SODIUM [Concomitant]
     Active Substance: PANTOPRAZOLE SODIUM
     Indication: Upper gastrointestinal haemorrhage
     Dosage: 40 MILLIGRAM, QD
     Route: 048
     Dates: start: 20231205
  12. PANTOPRAZOLE SODIUM [Concomitant]
     Active Substance: PANTOPRAZOLE SODIUM
     Dosage: 80 MILLIGRAM, BID
     Route: 048
     Dates: start: 20240208
  13. PANTOPRAZOLE SODIUM [Concomitant]
     Active Substance: PANTOPRAZOLE SODIUM
     Dosage: 40 MILLIGRAM, BID
     Route: 048
     Dates: start: 20240228, end: 20240301
  14. TAMSULOSIN [Concomitant]
     Active Substance: TAMSULOSIN
     Indication: Benign prostatic hyperplasia
     Dosage: 0.4 MILLIGRAM, QD
     Route: 048
     Dates: start: 202304
  15. TRANEXAMIC ACID [Concomitant]
     Active Substance: TRANEXAMIC ACID
     Indication: Haemorrhage prophylaxis
     Dosage: 1 GRAM, TID
     Route: 048
     Dates: start: 20231207, end: 20231210
  16. BIKTARVY [Concomitant]
     Active Substance: BICTEGRAVIR SODIUM\EMTRICITABINE\TENOFOVIR ALAFENAMIDE FUMARATE
     Indication: HIV infection
     Dosage: UNK UNK, QD
     Route: 048
  17. SULTAMICILLIN [Concomitant]
     Active Substance: SULTAMICILLIN
     Indication: Pneumonia aspiration
     Dosage: 750 MILLIGRAM, BID
     Route: 048
     Dates: start: 20240109, end: 20240114
  18. POTASSIUM CHLORIDE [Concomitant]
     Active Substance: POTASSIUM CHLORIDE
     Indication: Hypokalaemia
     Dosage: 600 MILLIGRAM, TID
     Route: 048
     Dates: start: 20240112, end: 20240112
  19. METAMIZOLE [Concomitant]
     Active Substance: METAMIZOLE
     Indication: Analgesic therapy
     Dosage: 30 GTT DROPS, TID
     Route: 048
     Dates: start: 20240109, end: 20240112
  20. METOCLOPRAMIDE [Concomitant]
     Active Substance: METOCLOPRAMIDE
     Indication: Antiemetic supportive care
     Dosage: 10 MILLIGRAM, TID
     Route: 048
     Dates: start: 20240102, end: 20240112
  21. HUMAN RED BLOOD CELL [Concomitant]
     Active Substance: HUMAN RED BLOOD CELL
     Indication: Upper gastrointestinal haemorrhage
     Dosage: UNK UNK, SINGLE
     Route: 042
     Dates: start: 20240208, end: 20240208
  22. HUMAN RED BLOOD CELL [Concomitant]
     Active Substance: HUMAN RED BLOOD CELL
     Indication: Melaena
     Dosage: UNK UNK, SINGLE
     Route: 042
     Dates: start: 20240226, end: 20240227
  23. HUMAN RED BLOOD CELL [Concomitant]
     Active Substance: HUMAN RED BLOOD CELL
     Dosage: UNK UNK, SINGLE
     Route: 042
     Dates: start: 20240228, end: 20240228
  24. COTRIM [Concomitant]
     Active Substance: SULFAMETHOXAZOLE\TRIMETHOPRIM
     Indication: Blood culture positive
     Dosage: 960 MILLIGRAM, BID
     Route: 048
     Dates: start: 20240209, end: 20240225
  25. TERLIPRESSIN [Concomitant]
     Active Substance: TERLIPRESSIN
     Indication: Upper gastrointestinal haemorrhage
     Dosage: 1 MILLIGRAM, QID
     Route: 042
     Dates: start: 20240208, end: 20240217
  26. ERYTHROMYCIN [Concomitant]
     Active Substance: ERYTHROMYCIN
     Indication: Upper gastrointestinal haemorrhage
     Dosage: 250 MILLIGRAM, SINGLE
     Route: 042
     Dates: start: 20240208, end: 20240208
  27. FRESH FROZEN PLASMA [Concomitant]
     Active Substance: HUMAN PLASMA
     Indication: Melaena
     Dosage: UNK UNK, SINGLE
     Route: 042
     Dates: start: 20240226, end: 20240227
  28. PLATELETS [Concomitant]
     Active Substance: HUMAN PLATELET, ALLOGENIC
     Indication: Melaena
     Dosage: UNK UNK, SINGLE
     Route: 042
     Dates: start: 20240226, end: 20240227
  29. AMINO ACIDS\DEXTROSE\ELECTROLYTES NOS\SOYBEAN OIL [Concomitant]
     Active Substance: AMINO ACIDS\DEXTROSE\ELECTROLYTES NOS\SOYBEAN OIL
     Indication: Parenteral nutrition
     Dosage: 100 MILLILITER, Q1HR
     Route: 042
     Dates: start: 20240228, end: 20240301
  30. POTASSIUM CHLORIDE [Concomitant]
     Active Substance: POTASSIUM CHLORIDE
     Indication: Mineral supplementation
     Dosage: UNK UNK, Q1HR
     Route: 042
     Dates: start: 20240228, end: 20240301
  31. TORSEMIDE [Concomitant]
     Active Substance: TORSEMIDE
     Indication: Diuretic therapy
     Dosage: 5 MILLIGRAM, QD
     Route: 048
     Dates: start: 20240228, end: 20240301
  32. THROMBIN [Concomitant]
     Active Substance: THROMBIN
     Indication: Upper gastrointestinal haemorrhage
     Dosage: UNK UNK, SINGLE
     Route: 042
     Dates: start: 20240226, end: 20240227
  33. SUPRARENIN [Concomitant]
     Active Substance: EPINEPHRINE
     Indication: Upper gastrointestinal haemorrhage
     Dosage: UNK UNK, SINGLE
     Route: 050
     Dates: start: 20240208, end: 20240208

REACTIONS (1)
  - Device dislocation [Recovered/Resolved]

NARRATIVE: CASE EVENT DATE: 20241007
